FAERS Safety Report 5253794-X (Version None)
Quarter: 2007Q1

REPORT INFORMATION
  Report Type: 
  Country: None (occurrence: None)
  Receive Date: 20070301
  Receipt Date: 20070220
  Transmission Date: 20070707
  Serious: Yes (Hospitalization)
  Sender: FDA-Public Use
  Company Number: JP-ABBOTT-07P-087-0360040-00

PATIENT
  Sex: Male

DRUGS (19)
  1. CLARITHROMYCIN [Suspect]
     Indication: NASOPHARYNGITIS
     Route: 048
     Dates: start: 20070111, end: 20070113
  2. CLARITHROMYCIN [Suspect]
     Route: 048
     Dates: start: 20070122, end: 20070129
  3. FAMOTIDINE [Concomitant]
     Indication: ANTACID THERAPY
     Route: 048
     Dates: start: 20070122, end: 20070215
  4. AMBROXOL HYDROCHLORIDE [Concomitant]
     Indication: PRODUCTIVE COUGH
     Route: 048
     Dates: start: 20070122, end: 20070215
  5. CHERRY BARK EXTRACT [Concomitant]
     Indication: ANTITUSSIVE THERAPY
     Route: 048
     Dates: start: 20070122, end: 20070215
  6. APRICOT KERNAL WATER [Concomitant]
     Indication: ANTITUSSIVE THERAPY
     Route: 048
     Dates: start: 20070122, end: 20070215
  7. SENEGA SYRUP [Concomitant]
     Indication: ANTITUSSIVE THERAPY
     Route: 048
     Dates: start: 20070122, end: 20070215
  8. POLAPREZINC [Concomitant]
     Indication: PROPHYLAXIS AGAINST GASTROINTESTINAL ULCER
     Route: 048
     Dates: start: 20070130, end: 20070220
  9. CEFEPIME HYDROCHLORIDE [Concomitant]
     Indication: ANTIBIOTIC PROPHYLAXIS
     Route: 050
     Dates: start: 20070122, end: 20070129
  10. ZOLPIDEM TARTRATE [Concomitant]
     Indication: INSOMNIA
     Route: 048
     Dates: start: 20070122, end: 20070122
  11. ZOLPIDEM TARTRATE [Concomitant]
     Route: 048
     Dates: start: 20070204, end: 20070204
  12. ZOLPIDEM TARTRATE [Concomitant]
     Route: 048
     Dates: start: 20070215, end: 20070219
  13. SENNOSIDE [Concomitant]
     Indication: LAXATIVE SUPPORTIVE CARE
     Route: 048
     Dates: start: 20070123, end: 20070124
  14. SENNOSIDE [Concomitant]
     Route: 048
     Dates: start: 20070126, end: 20070128
  15. SENNOSIDE [Concomitant]
     Route: 048
     Dates: start: 20070219, end: 20070219
  16. LEVOFLOXACIN [Concomitant]
     Indication: NASOPHARYNGITIS
     Route: 048
     Dates: start: 20070115, end: 20070118
  17. TULOBUTEROL [Concomitant]
     Indication: NASOPHARYNGITIS
     Route: 062
     Dates: start: 20070115, end: 20070118
  18. MONTELUKAST SODIUM [Concomitant]
     Indication: NASOPHARYNGITIS
     Route: 048
     Dates: start: 20070115, end: 20070118
  19. CEFTRIAXONE SODIUM HYDRATE [Concomitant]
     Indication: NASOPHARYNGITIS
     Route: 042
     Dates: start: 20070120

REACTIONS (5)
  - DRUG ERUPTION [None]
  - EOSINOPHILIA [None]
  - PAIN IN EXTREMITY [None]
  - PNEUMONIA [None]
  - PYREXIA [None]
